FAERS Safety Report 16151960 (Version 1)
Quarter: 2019Q2

REPORT INFORMATION
  Report Type: Spontaneous
  Country: US (occurrence: US)
  Receive Date: 20190403
  Receipt Date: 20190403
  Transmission Date: 20190711
  Serious: No
  Sender: FDA-Public Use
  Company Number: US-SUNOVION-2019SUN001239

PATIENT
  Age: 84 Year
  Sex: Male

DRUGS (1)
  1. SEEBRI [Suspect]
     Active Substance: GLYCOPYRROLATE
     Dosage: UNK
     Route: 055

REACTIONS (7)
  - Vision blurred [Unknown]
  - Dizziness [Unknown]
  - Expired product administered [Unknown]
  - Abdominal distension [Unknown]
  - Lip swelling [Unknown]
  - Pharyngeal swelling [Unknown]
  - Pollakiuria [Unknown]
